FAERS Safety Report 16952598 (Version 1)
Quarter: 2019Q4

REPORT INFORMATION
  Report Type: Report from Study
  Country: CN (occurrence: CN)
  Receive Date: 20191023
  Receipt Date: 20191023
  Transmission Date: 20200122
  Serious: Yes (Other)
  Sender: FDA-Public Use
  Company Number: CN-ROCHE-2452888

PATIENT

DRUGS (6)
  1. CIMETIDINE [Concomitant]
     Active Substance: CIMETIDINE
     Dosage: 30 MIN BEFORE ADMINISTRATION
     Route: 041
  2. DEXAMETHASONE. [Concomitant]
     Active Substance: DEXAMETHASONE
     Dosage: 30 MIN BEFORE ADMINISTRATION
     Route: 040
  3. PACLITAXEL. [Suspect]
     Active Substance: PACLITAXEL
     Indication: LUNG ADENOCARCINOMA STAGE IV
     Dosage: 21 DAYS AS ONE CYCLE
     Route: 041
  4. DIPHENHYDRAMINE. [Concomitant]
     Active Substance: DIPHENHYDRAMINE
     Dosage: 30 MIN BEFORE ADMINISTRATION
     Route: 030
  5. DEXAMETHASONE. [Concomitant]
     Active Substance: DEXAMETHASONE
     Dosage: 12H AND 6H BEFORE ADMINISTRATION
     Route: 048
  6. CAPECITABINE. [Suspect]
     Active Substance: CAPECITABINE
     Indication: LUNG ADENOCARCINOMA STAGE IV
     Dosage: 21 DAYS AS ONE CYCLE
     Route: 048

REACTIONS (4)
  - Neutrophil count decreased [Unknown]
  - Liver injury [Unknown]
  - Bone marrow failure [Unknown]
  - White blood cell count decreased [Unknown]
